FAERS Safety Report 7789623-X (Version None)
Quarter: 2011Q3

REPORT INFORMATION
  Report Type: 
  Country: None (occurrence: None)
  Receive Date: 20110930
  Receipt Date: 20110927
  Transmission Date: 20111222
  Serious: Yes (Other)
  Sender: FDA-Public Use
  Company Number: FR-MERCK-1103FRA00203

PATIENT
  Age: 71 Year
  Sex: Female

DRUGS (5)
  1. ZETIA [Suspect]
     Route: 048
     Dates: start: 20101109, end: 20101119
  2. METFORMIN PAMOATE [Concomitant]
     Route: 065
  3. ACARBOSE [Concomitant]
     Route: 065
  4. FLUOXETINE HYDROCHLORIDE [Concomitant]
     Route: 065
  5. DIAZEPAM [Concomitant]
     Route: 065

REACTIONS (5)
  - PAIN IN EXTREMITY [None]
  - BONE PAIN [None]
  - MUSCULOSKELETAL PAIN [None]
  - BREAST CANCER RECURRENT [None]
  - MYALGIA [None]
